FAERS Safety Report 17440821 (Version 4)
Quarter: 2021Q4

REPORT INFORMATION
  Report Type: Spontaneous
  Country: US (occurrence: US)
  Receive Date: 20200220
  Receipt Date: 20211210
  Transmission Date: 20220303
  Serious: Yes (Hospitalization, Other)
  Sender: FDA-Public Use
  Company Number: US-PFIZER INC-2020071789

PATIENT
  Age: 57 Year
  Sex: Female
  Weight: 90.72 kg

DRUGS (11)
  1. RAPAMUNE [Suspect]
     Active Substance: SIROLIMUS
     Indication: Prophylaxis against transplant rejection
     Dosage: UNK
     Dates: start: 2010
  2. RAPAMUNE [Suspect]
     Active Substance: SIROLIMUS
     Dosage: 10-12MG, DAILY, DEPENDING ON CREATININE LEVELS
  3. RAPAMUNE [Suspect]
     Active Substance: SIROLIMUS
     Dosage: 10 MG, DAILY
     Route: 048
  4. RAPAMUNE [Suspect]
     Active Substance: SIROLIMUS
     Dosage: UNK (7 TABLETS INSTEAD OF 12)
  5. RAPAMUNE [Suspect]
     Active Substance: SIROLIMUS
     Dosage: 3 MG, DAILY 6 TABS EVERY DAY
  6. PREDNISONE [Suspect]
     Active Substance: PREDNISONE
     Indication: Prophylaxis against transplant rejection
     Dosage: 15000 MG, DAILY
     Dates: start: 2010, end: 2010
  7. PREDNISONE [Suspect]
     Active Substance: PREDNISONE
     Dosage: 5 MG, DAILY (HAD TAKEN 1 YEAR TO FINALLY LOWER PREDNISONE DOSE TO 5MG DAILY)
  8. MYFORTIC [Concomitant]
     Active Substance: MYCOPHENOLATE SODIUM
     Indication: Prophylaxis against transplant rejection
     Dosage: 360 MG, DAILY (2 TABLETS)
  9. LEVEMIR [Concomitant]
     Active Substance: INSULIN DETEMIR
     Indication: Pancreatic disorder
     Dosage: 12 IU, DAILY
  10. LEVEMIR [Concomitant]
     Active Substance: INSULIN DETEMIR
     Indication: Diabetes mellitus
     Dosage: 16 IU
  11. MYCOPHENOLIC ACID [Concomitant]
     Active Substance: MYCOPHENOLIC ACID
     Indication: Immunosuppression
     Dosage: 380 MG, DAILY (ONE IN THE MORNING, ONE IN THE AFTERNOON)

REACTIONS (40)
  - Transplant rejection [Unknown]
  - Pneumonia [Unknown]
  - Abdominal infection [Unknown]
  - Pseudomonas infection [Unknown]
  - Skin cancer [Not Recovered/Not Resolved]
  - Hernia [Unknown]
  - Implantation complication [Unknown]
  - Diabetes mellitus [Unknown]
  - Rectal ulcer [Unknown]
  - Osteoporosis [Unknown]
  - Diverticulitis [Unknown]
  - Cellulitis [Unknown]
  - Squamous cell carcinoma [Unknown]
  - Herpes virus infection [Unknown]
  - Tooth disorder [Unknown]
  - Scar [Not Recovered/Not Resolved]
  - Peripheral venous disease [Unknown]
  - Influenza [Recovering/Resolving]
  - Nasal congestion [Recovering/Resolving]
  - Tinnitus [Recovering/Resolving]
  - Rhinorrhoea [Recovering/Resolving]
  - Cough [Recovering/Resolving]
  - Sneezing [Recovering/Resolving]
  - Immune system disorder [Unknown]
  - Sinusitis [Unknown]
  - Dyspnoea [Unknown]
  - Blister [Unknown]
  - Peripheral swelling [Unknown]
  - Teething [Unknown]
  - Depression [Unknown]
  - Osteopenia [Unknown]
  - Arthritis [Unknown]
  - Tongue disorder [Unknown]
  - Tooth fracture [Unknown]
  - Infection [Unknown]
  - Plantar fasciitis [Unknown]
  - Cystitis [Unknown]
  - Diarrhoea [Unknown]
  - Odynophagia [Unknown]
  - Haemorrhoids [Unknown]

NARRATIVE: CASE EVENT DATE: 20090101
